FAERS Safety Report 7463477-3 (Version None)
Quarter: 2011Q2

REPORT INFORMATION
  Report Type: 
  Country: None (occurrence: None)
  Receive Date: 20110506
  Receipt Date: 20110425
  Transmission Date: 20111010
  Serious: Yes (Other)
  Sender: FDA-Public Use
  Company Number: PHHY2011US35019

PATIENT
  Sex: Female

DRUGS (3)
  1. TASIGNA [Suspect]
     Dosage: 400 MG, QD
     Route: 048
  2. TASIGNA [Suspect]
     Indication: CHRONIC MYELOID LEUKAEMIA
     Dosage: 400 MG, BID
     Route: 048
     Dates: start: 20100701
  3. TASIGNA [Suspect]
     Dosage: 400 MG, BID
     Route: 048

REACTIONS (4)
  - LABELLED DRUG-FOOD INTERACTION MEDICATION ERROR [None]
  - CHEST PAIN [None]
  - MALAISE [None]
  - ELECTROCARDIOGRAM QT PROLONGED [None]
